FAERS Safety Report 21476382 (Version 2)
Quarter: 2022Q4

REPORT INFORMATION
  Report Type: Report from Study
  Country: US (occurrence: US)
  Receive Date: 20221019
  Receipt Date: 20221129
  Transmission Date: 20230113
  Serious: Yes (Other)
  Sender: FDA-Public Use
  Company Number: US-ABBVIE-4158428

PATIENT
  Sex: Female
  Weight: 68.038 kg

DRUGS (1)
  1. CREON [Suspect]
     Active Substance: PANCRELIPASE AMYLASE\PANCRELIPASE LIPASE\PANCRELIPASE PROTEASE
     Indication: Pancreatic failure
     Dosage: FORM STRENGTH 36000 UNIT
     Route: 048
     Dates: start: 201912

REACTIONS (4)
  - Parathyroid tumour [Unknown]
  - Endocrine disorder [Unknown]
  - Cranial nerve disorder [Unknown]
  - Malaise [Unknown]
